FAERS Safety Report 5042095-0 (Version None)
Quarter: 2006Q2

REPORT INFORMATION
  Report Type: 
  Country: None (occurrence: None)
  Receive Date: 20060627
  Receipt Date: 20060608
  Transmission Date: 20061013
  Serious: Yes (Other)
  Sender: FDA-Public Use
  Company Number: US200606003016

PATIENT
  Sex: Female

DRUGS (2)
  1. FORTEO [Suspect]
     Dosage: LIQUID
  2. FORTEO [Concomitant]

REACTIONS (2)
  - HEPATIC FAILURE [None]
  - HYPERCALCAEMIA [None]
